FAERS Safety Report 25935149 (Version 1)
Quarter: 2025Q4

REPORT INFORMATION
  Report Type: Spontaneous
  Country: CA (occurrence: CA)
  Receive Date: 20251017
  Receipt Date: 20251017
  Transmission Date: 20260118
  Serious: Yes (Other)
  Sender: SAMSUNG BIOEPIS
  Company Number: CA-SAMSUNG BIOEPIS-SB-2025-34494

PATIENT
  Age: 70 Year
  Sex: Female
  Weight: 59.87 kg

DRUGS (1)
  1. RENFLEXIS [Suspect]
     Active Substance: INFLIXIMAB-ABDA
     Indication: Crohn^s disease
     Dosage: POWDER FOR SOLUTION;
     Route: 042

REACTIONS (2)
  - Interferon alpha level decreased [Recovering/Resolving]
  - Product use issue [Unknown]
